FAERS Safety Report 19972535 (Version 2)
Quarter: 2021Q4

REPORT INFORMATION
  Report Type: Other
  Country: US (occurrence: US)
  Receive Date: 20211019
  Receipt Date: 20211026
  Transmission Date: 20220303
  Serious: Yes (Life-Threatening)
  Sender: FDA-Public Use
  Company Number: US-ALSI-2021000328

PATIENT
  Age: 88 Year
  Sex: Male

DRUGS (2)
  1. OXYGEN [Suspect]
     Active Substance: OXYGEN
     Indication: Drug interaction
     Route: 055
  2. AMIODARONE [Suspect]
     Active Substance: AMIODARONE

REACTIONS (5)
  - Acute respiratory distress syndrome [Recovering/Resolving]
  - Bronchiectasis [Recovering/Resolving]
  - Pulmonary toxicity [Recovering/Resolving]
  - Acute respiratory failure [Recovering/Resolving]
  - Drug interaction [Recovering/Resolving]
